FAERS Safety Report 16911655 (Version 4)
Quarter: 2019Q4

REPORT INFORMATION
  Report Type: Spontaneous
  Country: PT (occurrence: PT)
  Receive Date: 20191013
  Receipt Date: 20191227
  Transmission Date: 20200122
  Serious: Yes (Life-Threatening, Hospitalization, Other)
  Sender: FDA-Public Use
  Company Number: PT-AUROBINDO-AUR-APL-2019-066324

PATIENT
  Age: 63 Year
  Sex: Female

DRUGS (3)
  1. GLICLAZIDE [Suspect]
     Active Substance: GLICLAZIDE
     Dosage: 60 MILLIGRAM, ONCE A DAY
     Route: 065
  2. METFORMIN [Suspect]
     Active Substance: METFORMIN HYDROCHLORIDE
     Indication: DIABETES MELLITUS
     Dosage: 2000 MILLIGRAM, ONCE A DAY
     Route: 048
  3. GLICLAZIDE [Suspect]
     Active Substance: GLICLAZIDE
     Indication: DIABETES MELLITUS
     Dosage: 80 MILLIGRAM, TWO TIMES A DAY
     Route: 048

REACTIONS (12)
  - Diabetic ketoacidosis [Recovered/Resolved]
  - Respiratory failure [Unknown]
  - Acute kidney injury [Unknown]
  - Vomiting [Unknown]
  - Haemodynamic instability [Unknown]
  - Nausea [Unknown]
  - Hyperkalaemia [Unknown]
  - Lactic acidosis [Unknown]
  - Psychomotor hyperactivity [Unknown]
  - Hyperlactacidaemia [Unknown]
  - Metabolic acidosis [Unknown]
  - Diarrhoea [Unknown]
